FAERS Safety Report 21558014 (Version 1)
Quarter: 2022Q4

REPORT INFORMATION
  Report Type: Report from Study
  Country: DE (occurrence: DE)
  Receive Date: 20221106
  Receipt Date: 20221106
  Transmission Date: 20230112
  Serious: Yes (Hospitalization)
  Sender: FDA-Public Use
  Company Number: DE-BAYER-2022A149021

PATIENT
  Age: 84 Year
  Sex: Female

DRUGS (3)
  1. EYLEA [Suspect]
     Active Substance: AFLIBERCEPT
     Indication: Neovascular age-related macular degeneration
     Dosage: 50 UL, SOLUTION FOR INJECTION
     Dates: start: 20191213
  2. EYLEA [Suspect]
     Active Substance: AFLIBERCEPT
     Dosage: 50 UL, SOLUTION FOR INJECTION
     Dates: start: 20210721
  3. EYLEA [Suspect]
     Active Substance: AFLIBERCEPT
     Dosage: 50 UL, SOLUTION FOR INJECTION
     Dates: start: 20211021

REACTIONS (1)
  - Hospitalisation [Unknown]
